FAERS Safety Report 23589241 (Version 1)
Quarter: 2024Q1

REPORT INFORMATION
  Report Type: Report from Study
  Country: US (occurrence: US)
  Receive Date: 20240303
  Receipt Date: 20240303
  Transmission Date: 20240410
  Serious: No
  Sender: FDA-Public Use
  Company Number: US-AstraZeneca-CH-00576008A

PATIENT
  Sex: Male

DRUGS (1)
  1. ULTOMIRIS [Suspect]
     Active Substance: RAVULIZUMAB-CWVZ
     Indication: Myasthenia gravis
     Dosage: UNK
     Route: 065
     Dates: start: 20240108

REACTIONS (5)
  - Abdominal discomfort [Unknown]
  - Asthenia [Unknown]
  - Dyspnoea [Unknown]
  - Neck pain [Unknown]
  - Therapeutic response shortened [Unknown]
